FAERS Safety Report 8528535-0 (Version None)
Quarter: 2012Q3

REPORT INFORMATION
  Report Type: 
  Country: None (occurrence: None)
  Receive Date: 20120723
  Receipt Date: 20120712
  Transmission Date: 20120928
  Serious: Yes (Other)
  Sender: FDA-Public Use
  Company Number: JP-BIOGENIDEC-2010BI022987

PATIENT
  Age: 62 Year
  Sex: Female

DRUGS (5)
  1. TYSABRI [Suspect]
     Indication: MULTIPLE SCLEROSIS
     Dates: start: 20100413, end: 20100511
  2. ALFACALCIDOL [Concomitant]
     Dates: start: 20051128
  3. HOCHU-EKKI-TO [Concomitant]
     Dates: start: 20091130
  4. LEVOTHYROXINE SODIUM [Concomitant]
     Dates: start: 20010101
  5. KAKKON-TO [Concomitant]
     Dates: start: 20070501

REACTIONS (1)
  - RETINAL DETACHMENT [None]
